FAERS Safety Report 13039386 (Version 1)
Quarter: 2016Q4

REPORT INFORMATION
  Report Type: Spontaneous
  Country: NZ (occurrence: NZ)
  Receive Date: 20161219
  Receipt Date: 20161219
  Transmission Date: 20170207
  Serious: Yes (Hospitalization, Other)
  Sender: FDA-Public Use
  Company Number: NZ-009507513-1612NZL008568

PATIENT
  Age: 54 Year
  Sex: Female
  Weight: 75 kg

DRUGS (3)
  1. LOSARTAN POTASSIUM. [Suspect]
     Active Substance: LOSARTAN POTASSIUM
     Dosage: 2700 MG , 27 TIMES MAX DAILY DOSE
  2. AMLODIPINE [Suspect]
     Active Substance: AMLODIPINE BESYLATE
     Dosage: 20 TIMES DAILY DOSE
  3. AMLODIPINE [Suspect]
     Active Substance: AMLODIPINE BESYLATE
     Dosage: 27 TIMES MAX DAILY DOSE

REACTIONS (5)
  - Metabolic acidosis [Unknown]
  - Intentional overdose [Unknown]
  - Respiratory failure [Unknown]
  - Hypotension [Unknown]
  - Renal failure [Recovered/Resolved]
